FAERS Safety Report 24379576 (Version 1)
Quarter: 2024Q3

REPORT INFORMATION
  Report Type: Spontaneous
  Country: FR (occurrence: FR)
  Receive Date: 20240930
  Receipt Date: 20240930
  Transmission Date: 20241016
  Serious: Yes (Other)
  Sender: MYLAN
  Company Number: None

PATIENT
  Age: 66 Year
  Sex: Male
  Weight: 68.5 kg

DRUGS (10)
  1. ETOPOSIDE [Suspect]
     Active Substance: ETOPOSIDE
     Indication: Hodgkin^s disease
     Dosage: UNK
     Route: 042
     Dates: start: 2007, end: 2008
  2. VINCRISTINE [Suspect]
     Active Substance: VINCRISTINE
     Indication: Hodgkin^s disease
     Dosage: UNK
     Route: 042
     Dates: start: 2007, end: 2008
  3. CARMUSTINE [Suspect]
     Active Substance: CARMUSTINE
     Indication: Hodgkin^s disease
     Dosage: UNK
     Route: 042
     Dates: start: 2007, end: 2008
  4. CYCLOPHOSPHAMIDE [Suspect]
     Active Substance: CYCLOPHOSPHAMIDE
     Indication: Hodgkin^s disease
     Dosage: UNK
     Route: 042
     Dates: start: 2007, end: 2008
  5. RITUXIMAB [Suspect]
     Active Substance: RITUXIMAB
     Indication: Hodgkin^s disease
     Dosage: UNK
     Route: 042
     Dates: start: 2007, end: 2008
  6. CYTARABINE [Suspect]
     Active Substance: CYTARABINE
     Indication: Hodgkin^s disease
     Dosage: UNK
     Route: 042
     Dates: start: 2007, end: 2008
  7. MELPHALAN [Suspect]
     Active Substance: MELPHALAN
     Indication: Hodgkin^s disease
     Dosage: UNK
     Route: 042
     Dates: start: 2007, end: 2008
  8. DOXORUBICIN [Suspect]
     Active Substance: DOXORUBICIN
     Indication: Hodgkin^s disease
     Dosage: UNK
     Route: 042
     Dates: start: 2007, end: 2008
  9. ZEVALIN [Suspect]
     Active Substance: IBRITUMOMAB TIUXETAN
     Indication: Hodgkin^s disease
     Dosage: UNK
     Route: 042
     Dates: start: 2007, end: 2008
  10. PREDNISONE [Suspect]
     Active Substance: PREDNISONE
     Indication: Hodgkin^s disease
     Dosage: UNK
     Route: 042
     Dates: start: 2007, end: 2008

REACTIONS (1)
  - Hepatic angiosarcoma [Not Recovered/Not Resolved]

NARRATIVE: CASE EVENT DATE: 20240701
